APPROVED DRUG PRODUCT: CYTOMEL
Active Ingredient: LIOTHYRONINE SODIUM
Strength: EQ 0.025MG BASE
Dosage Form/Route: TABLET;ORAL
Application: N010379 | Product #002 | TE Code: AB
Applicant: KING PHARMACEUTICALS RESEARCH AND DEVELOPMENT LLC
Approved: Approved Prior to Jan 1, 1982 | RLD: Yes | RS: No | Type: RX